FAERS Safety Report 5003687-8 (Version None)
Quarter: 2006Q1

REPORT INFORMATION
  Report Type: 
  Country: None (occurrence: None)
  Receive Date: 20060317
  Receipt Date: 20060214
  Transmission Date: 20060701
  Serious: Yes (Hospitalization)
  Sender: FDA-Public Use
  Company Number: US-JNJFOC-20060203489

PATIENT
  Age: 15 Year
  Sex: Female

DRUGS (2)
  1. ORTHO EVRA [Suspect]
     Indication: CONTRACEPTION
     Dosage: TRANSDERMAL
     Route: 062
     Dates: start: 20050201, end: 20050509
  2. ORTHO EVRA [Suspect]
     Indication: MENSTRUATION IRREGULAR
     Dosage: TRANSDERMAL
     Route: 062
     Dates: start: 20050201, end: 20050509

REACTIONS (2)
  - DEEP VEIN THROMBOSIS [None]
  - PULMONARY EMBOLISM [None]
